FAERS Safety Report 4532641-5 (Version None)
Quarter: 2004Q4

REPORT INFORMATION
  Report Type: 
  Country: None (occurrence: None)
  Receive Date: 20041220
  Receipt Date: 20041220
  Transmission Date: 20050328
  Serious: Yes (Other)
  Sender: FDA-Public Use
  Company Number: None

PATIENT
  Age: 68 Year
  Sex: Female
  Weight: 68 kg

DRUGS (6)
  1. VANCOMYCIN [Suspect]
     Indication: ENDOCARDITIS
     Dosage: 1 GRAM EVERY 72 HOURS IV
     Route: 042
     Dates: start: 20031018, end: 20031204
  2. VANCOMYCIN [Suspect]
     Indication: STAPHYLOCOCCAL INFECTION
     Dosage: 1 GRAM EVERY 72 HOURS IV
     Route: 042
     Dates: start: 20031018, end: 20031204
  3. ZESTRIL [Concomitant]
  4. RIFAMPIN [Concomitant]
  5. ASPIRIN [Concomitant]
  6. TYLENOL [Concomitant]

REACTIONS (6)
  - COUGH [None]
  - DYSPNOEA [None]
  - INFUSION SITE REACTION [None]
  - RESPIRATORY DISORDER [None]
  - TINNITUS [None]
  - WHEEZING [None]
